FAERS Safety Report 6934902-9 (Version None)
Quarter: 2010Q3

REPORT INFORMATION
  Report Type: 
  Country: None (occurrence: None)
  Receive Date: 20100821
  Receipt Date: 20100807
  Transmission Date: 20110219
  Serious: Yes (Hospitalization, Other)
  Sender: FDA-Public Use
  Company Number: PHHY2010US52669

PATIENT
  Sex: Male

DRUGS (1)
  1. GLEEVEC [Suspect]
     Dosage: 400 MG, QD
     Route: 048

REACTIONS (7)
  - BLOOD COUNT ABNORMAL [None]
  - BLOOD PRESSURE ABNORMAL [None]
  - COAGULOPATHY [None]
  - DIABETES MELLITUS [None]
  - DIZZINESS [None]
  - FLUID RETENTION [None]
  - SWELLING [None]
